FAERS Safety Report 8237254-X (Version None)
Quarter: 2012Q1

REPORT INFORMATION
  Report Type: 
  Country: None (occurrence: None)
  Receive Date: 20120327
  Receipt Date: 20120327
  Transmission Date: 20120608
  Serious: Yes (Hospitalization)
  Sender: FDA-Public Use
  Company Number: None

PATIENT
  Age: 85 Year
  Sex: Female
  Weight: 90 kg

DRUGS (14)
  1. MICARDIS [Concomitant]
     Route: 048
  2. MULTAQ [Concomitant]
  3. POTASSIUM CHLORIDE [Concomitant]
     Route: 048
  4. XARELTO [Suspect]
     Indication: ATRIAL FIBRILLATION
     Dosage: 20.0 MG
     Route: 048
     Dates: start: 20120114, end: 20120319
  5. FUROSEMIDE [Concomitant]
  6. METOPROLOL TARTRATE [Concomitant]
     Route: 048
  7. ADVAIR DISKUS 500/50 [Concomitant]
  8. FERROUS SULFATE TAB [Concomitant]
     Route: 048
  9. NORCO 10/325MG [Concomitant]
     Route: 048
  10. FLUOXETINE [Concomitant]
     Route: 048
  11. VENTOLIN HFA [Concomitant]
  12. SINGULAIR [Concomitant]
     Route: 048
  13. ALBUTEROL [Concomitant]
  14. FEMARA [Concomitant]
     Route: 048

REACTIONS (10)
  - HAEMATOCRIT DECREASED [None]
  - INTERNATIONAL NORMALISED RATIO DECREASED [None]
  - WEIGHT DECREASED [None]
  - HAEMOGLOBIN DECREASED [None]
  - COLON ADENOMA [None]
  - DIARRHOEA HAEMORRHAGIC [None]
  - PLATELET COUNT DECREASED [None]
  - RECTAL HAEMORRHAGE [None]
  - COLONIC POLYP [None]
  - CREATININE RENAL CLEARANCE DECREASED [None]
